FAERS Safety Report 18297474 (Version 1)
Quarter: 2020Q3

REPORT INFORMATION
  Report Type: Spontaneous
  Country: DE (occurrence: DE)
  Receive Date: 20200922
  Receipt Date: 20200922
  Transmission Date: 20201103
  Serious: Yes (Other)
  Sender: FDA-Public Use
  Company Number: NVSC2020DE254475

PATIENT
  Age: 33 Year
  Sex: Male

DRUGS (2)
  1. CARBAMAZEPIN 200 ? 1A?PHARMA [Suspect]
     Active Substance: CARBAMAZEPINE
     Indication: PRODUCT USED FOR UNKNOWN INDICATION
     Dosage: UNK (REZEPT JEWEILS EINGEL?ST AM 02.06.2020, 12.06.2020, 24.07.2020, 27.07.2020, 06.08.2020)
     Route: 065
     Dates: start: 2020
  2. CARBAMAZEPIN ARISTO [Suspect]
     Active Substance: CARBAMAZEPINE
     Indication: PRODUCT USED FOR UNKNOWN INDICATION
     Dosage: UNK (REZEPT JEWEILS EINGEL?ST AM 22.06.2020, 10.07.2020, 14.08.2020)
     Route: 065
     Dates: start: 2020

REACTIONS (1)
  - Drug abuse [Unknown]

NARRATIVE: CASE EVENT DATE: 2020
